FAERS Safety Report 4954315-9 (Version None)
Quarter: 2006Q1

REPORT INFORMATION
  Report Type: 
  Country: None (occurrence: None)
  Receive Date: 20060327
  Receipt Date: 20051018
  Transmission Date: 20060701
  Serious: Yes (Hospitalization, Disabling)
  Sender: FDA-Public Use
  Company Number: US-MERCK-0510USA07658

PATIENT
  Age: 43 Year
  Sex: Female
  Weight: 116 kg

DRUGS (4)
  1. VIOXX [Suspect]
     Indication: ARTHRITIS
     Route: 048
     Dates: start: 20010401, end: 20040401
  2. NORVASC [Concomitant]
     Route: 065
  3. ACCUPRIL [Concomitant]
     Route: 065
  4. LASIX [Concomitant]
     Route: 065

REACTIONS (7)
  - ADVERSE EVENT [None]
  - DEPRESSION [None]
  - DYSPEPSIA [None]
  - GOUT [None]
  - POST-TRAUMATIC STRESS DISORDER [None]
  - RENAL FAILURE [None]
  - SLEEP APNOEA SYNDROME [None]
